FAERS Safety Report 4311274-X (Version None)
Quarter: 2004Q1

REPORT INFORMATION
  Report Type: 
  Country: None (occurrence: None)
  Receive Date: 20040302
  Receipt Date: 20040302
  Transmission Date: 20041129
  Serious: Yes (Death, Life-Threatening)
  Sender: FDA-Public Use
  Company Number: None

PATIENT
  Sex: Female
  Weight: 12.5 kg

DRUGS (10)
  1. GEMTUZUMAB [Suspect]
     Indication: MYELOID LEUKAEMIA
     Dosage: 1.3 MG IV ONCE
     Route: 042
     Dates: start: 20040210
  2. PIPERACILLIN/TAZO [Concomitant]
  3. TOBRAMYCIN [Concomitant]
  4. VANCOMYCIN [Concomitant]
  5. CASPOFUNGIN [Concomitant]
  6. AZYCLOVIR [Concomitant]
  7. METOPENEM [Concomitant]
  8. CEFEPIME [Concomitant]
  9. PHENOBARBITAL TAB [Concomitant]
  10. FOSPHENYTOIN SODIUM [Concomitant]

REACTIONS (9)
  - ABDOMINAL DISTENSION [None]
  - AMMONIA INCREASED [None]
  - BACTERIAL SEPSIS [None]
  - COAGULOPATHY [None]
  - CONVULSION [None]
  - DIALYSIS [None]
  - MULTI-ORGAN FAILURE [None]
  - NEUTROPENIA [None]
  - RENAL FAILURE [None]
